FAERS Safety Report 6149912-1 (Version None)
Quarter: 2009Q2

REPORT INFORMATION
  Report Type: 
  Country: None (occurrence: None)
  Receive Date: 20090407
  Receipt Date: 20090401
  Transmission Date: 20091009
  Serious: Yes (Other)
  Sender: FDA-Public Use
  Company Number: A0770408A

PATIENT
  Age: 32 Year
  Sex: Female

DRUGS (1)
  1. UREA HYDROGEN PEROXIDE DROP (S) (UREA HYDROGEN PEROXIDE) [Suspect]
     Indication: DRUG USE FOR UNKNOWN INDICATION
     Dosage: AURAL
     Route: 001

REACTIONS (2)
  - DEAFNESS TRANSITORY [None]
  - EAR CONGESTION [None]
